FAERS Safety Report 5331545-8 (Version None)
Quarter: 2007Q2

REPORT INFORMATION
  Report Type: 
  Country: None (occurrence: None)
  Receive Date: 20070522
  Receipt Date: 20070510
  Transmission Date: 20071010
  Serious: Yes (Death)
  Sender: FDA-Public Use
  Company Number: JP-PFIZER INC-2007026130

PATIENT
  Sex: Female
  Weight: 39.3 kg

DRUGS (11)
  1. DETRUSITOL SR [Suspect]
     Indication: POLLAKIURIA
     Route: 048
     Dates: start: 20070309, end: 20070318
  2. PRULIFLOXACIN [Suspect]
     Indication: CYSTITIS
     Route: 048
     Dates: start: 20070214, end: 20070314
  3. LEVOFLOXACIN [Suspect]
     Indication: ENTEROCOLITIS BACTERIAL
     Route: 048
     Dates: start: 20070319, end: 20070325
  4. BIOFERMIN R [Suspect]
     Indication: ENTEROCOLITIS BACTERIAL
     Route: 048
     Dates: start: 20070319, end: 20070325
  5. THYRADIN-S [Concomitant]
     Route: 048
  6. FLUITRAN [Concomitant]
     Route: 048
  7. ADALAT [Concomitant]
     Route: 048
  8. LONGES [Concomitant]
     Route: 048
  9. ASPARA K [Concomitant]
     Route: 048
  10. FERROMIA [Concomitant]
     Route: 048
  11. RIZE [Concomitant]
     Route: 048
     Dates: start: 20070205, end: 20070325

REACTIONS (7)
  - DEHYDRATION [None]
  - DIARRHOEA [None]
  - ENTEROCOLITIS BACTERIAL [None]
  - FLATULENCE [None]
  - ILEUS [None]
  - PYREXIA [None]
  - RESPIRATORY DISORDER [None]
